FAERS Safety Report 12070125 (Version 3)
Quarter: 2016Q2

REPORT INFORMATION
  Report Type: Spontaneous
  Country: JP (occurrence: JP)
  Receive Date: 20160211
  Receipt Date: 20160421
  Transmission Date: 20160815
  Serious: Yes (Other)
  Sender: FDA-Public Use
  Company Number: JP-JNJFOC-20160121817

PATIENT
  Age: 59 Year
  Sex: Male
  Weight: 66 kg

DRUGS (21)
  1. PURSENNID [Concomitant]
     Active Substance: SENNOSIDES A AND B
     Route: 048
  2. RISPERDAL [Suspect]
     Active Substance: RISPERIDONE
     Indication: SCHIZOPHRENIA
     Route: 048
     Dates: start: 20091030, end: 20100822
  3. MIKELAN [Concomitant]
     Route: 048
  4. RISPERDAL [Suspect]
     Active Substance: RISPERIDONE
     Indication: SCHIZOPHRENIA
     Route: 048
     Dates: start: 20100823, end: 20110412
  5. RISPERDAL [Suspect]
     Active Substance: RISPERIDONE
     Indication: SCHIZOPHRENIA
     Route: 048
     Dates: start: 20130911, end: 20131107
  6. RISPERDAL [Suspect]
     Active Substance: RISPERIDONE
     Indication: SCHIZOPHRENIA
     Route: 048
     Dates: start: 20131108, end: 20131205
  7. RISPERIDONE ORO DISPERSIBLE [Suspect]
     Active Substance: RISPERIDONE
     Indication: SCHIZOPHRENIA
     Route: 048
     Dates: start: 20151016, end: 20160107
  8. GASCON [Concomitant]
     Active Substance: DIMETHICONE
     Route: 048
  9. LONASEN [Concomitant]
     Active Substance: BLONANSERIN
     Route: 048
     Dates: start: 20160108
  10. ZOTEPINE [Concomitant]
     Active Substance: ZOTEPINE
     Route: 048
  11. TASMOLIN [Concomitant]
     Active Substance: BIPERIDEN
     Route: 048
  12. RISPERDAL [Suspect]
     Active Substance: RISPERIDONE
     Indication: SCHIZOPHRENIA
     Route: 048
     Dates: start: 20090416, end: 20090913
  13. RISPERIDONE ORO DISPERSIBLE [Suspect]
     Active Substance: RISPERIDONE
     Indication: SCHIZOPHRENIA
     Route: 048
     Dates: start: 20140328, end: 20151015
  14. ZOTEPINE [Concomitant]
     Active Substance: ZOTEPINE
     Route: 048
  15. RISPERDAL [Suspect]
     Active Substance: RISPERIDONE
     Indication: SCHIZOPHRENIA
     Route: 048
     Dates: start: 20131206, end: 20140327
  16. RISPERDAL [Suspect]
     Active Substance: RISPERIDONE
     Indication: SCHIZOPHRENIA
     Route: 048
     Dates: start: 20110413, end: 20131010
  17. RISPERIDONE ORO DISPERSIBLE [Suspect]
     Active Substance: RISPERIDONE
     Indication: SCHIZOPHRENIA
     Route: 048
     Dates: start: 20160108, end: 20160121
  18. RISPERIDONE ORO DISPERSIBLE [Suspect]
     Active Substance: RISPERIDONE
     Indication: SCHIZOPHRENIA
     Route: 048
     Dates: start: 20160122
  19. AMOBAN [Concomitant]
     Active Substance: ZOPICLONE
     Route: 048
  20. RISPERDAL CONSTA [Suspect]
     Active Substance: RISPERIDONE
     Indication: SCHIZOPHRENIA
     Route: 030
     Dates: start: 20140704, end: 20160122
  21. RISPERDAL [Suspect]
     Active Substance: RISPERIDONE
     Indication: SCHIZOPHRENIA
     Route: 048
     Dates: start: 20090914, end: 20091029

REACTIONS (3)
  - Drug prescribing error [Unknown]
  - Intervertebral disc protrusion [Recovered/Resolved]
  - Off label use [Unknown]

NARRATIVE: CASE EVENT DATE: 20160108
